FAERS Safety Report 19507913 (Version 2)
Quarter: 2021Q3

REPORT INFORMATION
  Report Type: Spontaneous
  Country: HR (occurrence: HR)
  Receive Date: 20210708
  Receipt Date: 20210722
  Transmission Date: 20211014
  Serious: Yes (Hospitalization, Other)
  Sender: FDA-Public Use
  Company Number: HR-PFIZER INC-2021814799

PATIENT
  Sex: Male
  Weight: 90 kg

DRUGS (15)
  1. SOTALOL. [Concomitant]
     Active Substance: SOTALOL
     Dosage: 120 MILLIGRAM
     Route: 065
  2. PIRIDOSTIGMINA [Concomitant]
     Dosage: UNK
     Route: 065
  3. LEVOTHYROXINE. [Concomitant]
     Active Substance: LEVOTHYROXINE
     Dosage: UNK UNK, QD
     Route: 065
  4. FUROSEMIDE. [Suspect]
     Active Substance: FUROSEMIDE
     Dosage: 500 MILLIGRAM
     Route: 065
  5. SACUBITRIL/VALSARTAN [Suspect]
     Active Substance: SACUBITRIL\VALSARTAN
     Indication: CARDIAC FAILURE
     Dosage: 97/103 MILLIGRAM, QD
     Route: 065
  6. AZATHIOPRINE. [Concomitant]
     Active Substance: AZATHIOPRINE
     Dosage: UNK
     Route: 065
  7. FUROSEMIDE. [Suspect]
     Active Substance: FUROSEMIDE
     Dosage: 80 MILLIGRAM, QD
     Route: 065
  8. PANTOPRAZOLE [Suspect]
     Active Substance: PANTOPRAZOLE
     Dosage: 40 MILLIGRAM, QD
     Route: 065
  9. FUROSEMIDE. [Suspect]
     Active Substance: FUROSEMIDE
     Dosage: 40 MILLIGRAM, QD
     Route: 065
  10. LOSARTAN. [Concomitant]
     Active Substance: LOSARTAN
     Dosage: UNK UNK, QD
     Route: 065
  11. SACUBITRIL/VALSARTAN [Suspect]
     Active Substance: SACUBITRIL\VALSARTAN
     Dosage: 49/51 MILLIGRAM, QD
     Route: 065
  12. SOTALOL. [Concomitant]
     Active Substance: SOTALOL
     Dosage: 80 MILLIGRAM, QD
     Route: 065
  13. METHYLPREDNISOLONE. [Concomitant]
     Active Substance: METHYLPREDNISOLONE
     Dosage: UNK
  14. RIVAROXABAN [Concomitant]
     Active Substance: RIVAROXABAN
     Dosage: UNK UNK, QD
     Route: 065
  15. EPLERENONE. [Concomitant]
     Active Substance: EPLERENONE
     Dosage: UNK UNK, QD
     Route: 065

REACTIONS (11)
  - Dysphonia [Unknown]
  - Eyelid ptosis [Unknown]
  - Dyspnoea [Unknown]
  - Mastication disorder [Unknown]
  - COVID-19 pneumonia [Unknown]
  - Dysphagia [Unknown]
  - Dysarthria [Unknown]
  - Palpitations [Unknown]
  - Ventricular tachycardia [Unknown]
  - Myasthenia gravis [Unknown]
  - Cardiac failure [Unknown]

NARRATIVE: CASE EVENT DATE: 201912
